FAERS Safety Report 8291079-8 (Version None)
Quarter: 2012Q2

REPORT INFORMATION
  Report Type: 
  Country: None (occurrence: None)
  Receive Date: 20120417
  Receipt Date: 20110623
  Transmission Date: 20120825
  Serious: No
  Sender: FDA-Public Use
  Company Number: US-ASTRAZENECA-2011SE38062

PATIENT
  Age: 57 Year
  Sex: Female
  Weight: 72.6 kg

DRUGS (6)
  1. ANTIBIOTIC [Concomitant]
     Indication: POSTOPERATIVE CARE
  2. ZANTAC [Concomitant]
     Indication: BARRETT'S OESOPHAGUS
  3. VICODIN [Concomitant]
     Indication: PROCEDURAL PAIN
  4. NEXIUM [Suspect]
     Indication: BARRETT'S OESOPHAGUS
     Route: 048
     Dates: start: 20110615
  5. VALLIUM [Concomitant]
     Indication: POSTOPERATIVE CARE
  6. ORAL STEROID [Concomitant]
     Indication: POSTOPERATIVE CARE

REACTIONS (3)
  - FACE LIFT [None]
  - OESOPHAGEAL SPASM [None]
  - HEADACHE [None]
